FAERS Safety Report 14170459 (Version 1)
Quarter: 2017Q4

REPORT INFORMATION
  Report Type: Report from Study
  Country: ES (occurrence: ES)
  Receive Date: 20171108
  Receipt Date: 20171108
  Transmission Date: 20180321
  Serious: Yes (Hospitalization)
  Sender: FDA-Public Use
  Company Number: ES-JNJFOC-20171105562

PATIENT
  Age: 80 Year
  Sex: Male

DRUGS (11)
  1. XARELTO [Suspect]
     Active Substance: RIVAROXABAN
     Indication: CEREBROVASCULAR ACCIDENT PROPHYLAXIS
     Route: 048
     Dates: start: 20150423, end: 20160418
  2. OMEPRAZOLE. [Concomitant]
     Active Substance: OMEPRAZOLE
     Route: 065
  3. SEGURIL [Concomitant]
     Active Substance: FUROSEMIDE
     Route: 065
  4. ALDACTONE A [Concomitant]
     Active Substance: SPIRONOLACTONE
     Route: 065
  5. OXYGEN. [Concomitant]
     Active Substance: OXYGEN
     Route: 065
  6. CARDURAN [Concomitant]
     Active Substance: DOXAZOSIN MESYLATE
     Route: 065
  7. XARELTO [Suspect]
     Active Substance: RIVAROXABAN
     Indication: ATRIAL FIBRILLATION
     Route: 048
     Dates: start: 20150423, end: 20160418
  8. ENALAPRIL [Concomitant]
     Active Substance: ENALAPRIL
     Route: 065
  9. ORFIDAL [Concomitant]
     Active Substance: LORAZEPAM
     Route: 065
  10. NITROGLYCERIN. [Concomitant]
     Active Substance: NITROGLYCERIN
     Dosage: 10 MG/24HR, UNK
     Route: 062
  11. MANIDIPINE [Concomitant]
     Active Substance: MANIDIPINE
     Route: 065

REACTIONS (2)
  - Faeces discoloured [Recovered/Resolved]
  - Iron deficiency anaemia [Recovering/Resolving]

NARRATIVE: CASE EVENT DATE: 20160414
